FAERS Safety Report 9753756 (Version 2)
Quarter: 2013Q4

REPORT INFORMATION
  Report Type: Spontaneous
  Country: US (occurrence: US)
  Receive Date: 20131213
  Receipt Date: 20131213
  Transmission Date: 20140711
  Serious: No
  Sender: FDA-Public Use
  Company Number: US-GILEAD-2010-0026537

PATIENT
  Age: 52 Year
  Sex: Male

DRUGS (6)
  1. MULTIVITAMIN [Concomitant]
  2. LETAIRIS [Suspect]
     Indication: PULMONARY ARTERIAL HYPERTENSION
     Route: 048
     Dates: start: 20080524, end: 20090602
  3. DICLOFENAC [Concomitant]
  4. HYDROCHLOROTHIAZIDE [Concomitant]
  5. PRILOSEC [Concomitant]
  6. REVATIO [Concomitant]

REACTIONS (1)
  - Alanine aminotransferase increased [Recovered/Resolved]
